FAERS Safety Report 5641788-1 (Version None)
Quarter: 2008Q1

REPORT INFORMATION
  Report Type: 
  Country: None (occurrence: None)
  Receive Date: 20080227
  Receipt Date: 20080219
  Transmission Date: 20080703
  Serious: Yes (Other)
  Sender: FDA-Public Use
  Company Number: PHBS2008RU02371

PATIENT
  Sex: Female

DRUGS (2)
  1. MIACALCIN [Suspect]
     Route: 045
  2. CALCIUM D3 [Concomitant]

REACTIONS (4)
  - HEADACHE [None]
  - MEMORY IMPAIRMENT [None]
  - MENINGIOMA [None]
  - VISUAL DISTURBANCE [None]
